FAERS Safety Report 7190312-3 (Version None)
Quarter: 2010Q4

REPORT INFORMATION
  Report Type: 
  Country: None (occurrence: None)
  Receive Date: 20101223
  Receipt Date: 20101217
  Transmission Date: 20110411
  Serious: Yes (Death, Other)
  Sender: FDA-Public Use
  Company Number: PHHY2009JP09673

PATIENT
  Sex: Female

DRUGS (5)
  1. ZOLEDRONATE T29581+ [Suspect]
     Dosage: 4 MG EVERY FOUR WEEKS
     Route: 042
     Dates: start: 20071115, end: 20090511
  2. FEMARA [Suspect]
     Indication: BREAST CANCER
     Dosage: 2.5 MG/DAY
     Route: 048
     Dates: start: 20070107, end: 20090519
  3. EPIRUBICIN HYDROCHLORIDE [Concomitant]
     Indication: BREAST CANCER
     Dosage: 126 MG
     Route: 042
     Dates: start: 20070919, end: 20071121
  4. ENDOXAN [Concomitant]
     Indication: BREAST CANCER
     Dosage: 840 MG
     Route: 042
     Dates: start: 20070919, end: 20071121
  5. FLUOROURACIL [Concomitant]
     Indication: BREAST CANCER
     Dosage: 700 MG
     Route: 042
     Dates: start: 20070919, end: 20071121

REACTIONS (3)
  - BLOOD UREA DECREASED [None]
  - CEREBRAL HAEMORRHAGE [None]
  - METASTASES TO SPINE [None]
